FAERS Safety Report 9384872 (Version 1)
Quarter: 2013Q3

REPORT INFORMATION
  Report Type: Report from Study
  Country: CO (occurrence: CO)
  Receive Date: 20130705
  Receipt Date: 20130705
  Transmission Date: 20140515
  Serious: Yes (Death)
  Sender: FDA-Public Use
  Company Number: CO-SANOFI-AVENTIS-2013SA066939

PATIENT
  Age: 62 Year
  Sex: Male

DRUGS (7)
  1. LANTUS [Suspect]
     Indication: DIABETES MELLITUS
     Route: 058
     Dates: start: 2012, end: 20130602
  2. APIDRA [Suspect]
     Indication: DIABETES MELLITUS
     Route: 058
     Dates: start: 2012, end: 20130602
  3. METFORMIN [Suspect]
     Indication: DIABETES MELLITUS
     Route: 048
     Dates: end: 20130602
  4. LOSARTAN [Suspect]
     Indication: HYPERTENSION
     Route: 048
     Dates: end: 20130602
  5. LOVASTATIN [Concomitant]
     Route: 048
     Dates: start: 20130602
  6. ACETYLSALICYLIC ACID [Concomitant]
     Route: 048
     Dates: start: 20130602
  7. OMEPRAZOLE [Concomitant]
     Route: 048
     Dates: start: 20130602

REACTIONS (1)
  - Cardio-respiratory arrest [Fatal]
